FAERS Safety Report 10218952 (Version 2)
Quarter: 2014Q2

REPORT INFORMATION
  Report Type: Spontaneous
  Country: CA (occurrence: CA)
  Receive Date: 20140605
  Receipt Date: 20140605
  Transmission Date: 20141212
  Serious: Yes (Death, Hospitalization)
  Sender: FDA-Public Use
  Company Number: CA-BAXTER-2014BAX018912

PATIENT
  Age: 73 Year
  Sex: Male

DRUGS (2)
  1. DIANEAL PD4 SOLUTION WITH 1.5% DEXTROSE AND 2.5 MEQ/L CALCIUM [Suspect]
     Indication: RENAL FAILURE
     Dosage: 4 BAGS OF 3 LITERS
     Route: 033
     Dates: start: 20120915
  2. DIANEAL PD4 SOLUTION WITH 1.5% DEXTROSE AND 2.5 MEQ/L CALCIUM [Suspect]
     Indication: PERITONEAL DIALYSIS
     Dosage: 4 BAGS OF 3 LITERS
     Route: 033
     Dates: start: 20120915

REACTIONS (3)
  - Hypotension [Fatal]
  - Gastrointestinal infection [Fatal]
  - Cerebrovascular accident [Fatal]
